FAERS Safety Report 12322431 (Version 6)
Quarter: 2016Q3

REPORT INFORMATION
  Report Type: Report from Study
  Country: US (occurrence: US)
  Receive Date: 20160502
  Receipt Date: 20160729
  Transmission Date: 20161109
  Serious: Yes (Other)
  Sender: FDA-Public Use
  Company Number: US-BAYER-2016-078510

PATIENT
  Age: 55 Year
  Sex: Male

DRUGS (1)
  1. NEXAVAR [Suspect]
     Active Substance: SORAFENIB
     Indication: HEPATOCELLULAR CARCINOMA
     Dosage: 400 MG, BID
     Route: 048
     Dates: start: 20160413

REACTIONS (17)
  - Fatigue [None]
  - Heart rate decreased [None]
  - Pain of skin [None]
  - Decreased appetite [None]
  - Blister [Recovering/Resolving]
  - Pain in extremity [Recovering/Resolving]
  - Constipation [None]
  - Blood bilirubin increased [None]
  - Balance disorder [None]
  - Blood pressure increased [Recovering/Resolving]
  - Rash papular [None]
  - Nasal congestion [None]
  - Heart rate abnormal [None]
  - Nausea [None]
  - Weight decreased [None]
  - Diarrhoea [None]
  - Headache [Recovering/Resolving]

NARRATIVE: CASE EVENT DATE: 2016
